FAERS Safety Report 11594720 (Version 2)
Quarter: 2016Q1

REPORT INFORMATION
  Report Type: Spontaneous
  Country: US (occurrence: US)
  Receive Date: 20151005
  Receipt Date: 20160122
  Transmission Date: 20160525
  Serious: No
  Sender: FDA-Public Use
  Company Number: US-ELI_LILLY_AND_COMPANY-US201509003894

PATIENT
  Sex: Female

DRUGS (17)
  1. HUMALOG [Suspect]
     Active Substance: INSULIN LISPRO
     Dosage: 10 U, EACH EVENING
     Route: 065
     Dates: start: 20150907
  2. HUMALOG [Suspect]
     Active Substance: INSULIN LISPRO
     Dosage: 10 U, EACH EVENING
     Route: 065
     Dates: end: 20150906
  3. GUANFACINE. [Concomitant]
     Active Substance: GUANFACINE
  4. AMLODIPINE [Concomitant]
     Active Substance: AMLODIPINE BESYLATE
     Dosage: 5 MG, UNKNOWN
  5. GABAPENTIN. [Concomitant]
     Active Substance: GABAPENTIN
  6. LANTUS [Concomitant]
     Active Substance: INSULIN GLARGINE
  7. COENZYME Q10 [Concomitant]
     Active Substance: UBIDECARENONE
  8. CINNAMON                           /01647501/ [Concomitant]
     Active Substance: CINNAMON
  9. HUMALOG [Suspect]
     Active Substance: INSULIN LISPRO
     Indication: TYPE 2 DIABETES MELLITUS
     Dosage: 5 U, BID
     Route: 065
     Dates: start: 20150907
  10. WARFARIN [Concomitant]
     Active Substance: WARFARIN
  11. TOUJEO [Concomitant]
     Active Substance: INSULIN GLARGINE
  12. FUROSEMIDE. [Concomitant]
     Active Substance: FUROSEMIDE
  13. LEVOTHYROXINE. [Concomitant]
     Active Substance: LEVOTHYROXINE
  14. TELMISARTAN. [Concomitant]
     Active Substance: TELMISARTAN
  15. HUMALOG [Suspect]
     Active Substance: INSULIN LISPRO
     Indication: TYPE 2 DIABETES MELLITUS
     Dosage: 5 U, BID
     Route: 065
     Dates: end: 20150906
  16. PRAVASTATIN [Concomitant]
     Active Substance: PRAVASTATIN\PRAVASTATIN SODIUM
  17. SPIRONOLACTONE. [Concomitant]
     Active Substance: SPIRONOLACTONE

REACTIONS (4)
  - Blood glucose decreased [Recovered/Resolved]
  - Presyncope [Recovered/Resolved]
  - Blood glucose decreased [Recovered/Resolved]
  - Incorrect dose administered [Unknown]

NARRATIVE: CASE EVENT DATE: 201509
